FAERS Safety Report 4979581-5 (Version None)
Quarter: 2006Q2

REPORT INFORMATION
  Report Type: 
  Country: None (occurrence: None)
  Receive Date: 20060421
  Receipt Date: 20060203
  Transmission Date: 20061013
  Serious: Yes (Other)
  Sender: FDA-Public Use
  Company Number: JP-ROCHE-436861

PATIENT
  Age: 63 Year
  Sex: Female

DRUGS (6)
  1. TAMIFLU [Suspect]
     Route: 048
     Dates: start: 20060131, end: 20060201
  2. TAMIFLU [Suspect]
     Route: 048
     Dates: start: 20060202, end: 20060202
  3. ASTOMIN [Concomitant]
     Route: 048
  4. MUCODYNE [Concomitant]
     Route: 048
  5. TRANSAMIN [Concomitant]
     Route: 048
  6. CALONAL [Concomitant]
     Dosage: WHEN NEEDED TAKE ONCE DAILY.
     Route: 048

REACTIONS (1)
  - TRIGEMINAL PALSY [None]
